FAERS Safety Report 4347995-2 (Version None)
Quarter: 2004Q2

REPORT INFORMATION
  Report Type: 
  Country: None (occurrence: None)
  Receive Date: 20040422
  Receipt Date: 20040415
  Transmission Date: 20050107
  Serious: Yes (Disabling)
  Sender: FDA-Public Use
  Company Number: 2004209632DE

PATIENT
  Sex: Female

DRUGS (1)
  1. ZYVOXID 600MG(LINEZOLID) TABLET [Suspect]
     Dosage: 600 MG, BID, ORAL
     Route: 048

REACTIONS (1)
  - OPTIC ATROPHY [None]
